FAERS Safety Report 12575783 (Version 1)
Quarter: 2016Q3

REPORT INFORMATION
  Report Type: Spontaneous
  Country: DK (occurrence: DK)
  Receive Date: 20160720
  Receipt Date: 20160720
  Transmission Date: 20161109
  Serious: Yes (Hospitalization, Disabling)
  Sender: FDA-Public Use
  Company Number: PHHY2016DK095441

PATIENT
  Age: 70 Year
  Sex: Female

DRUGS (2)
  1. CIPROFLOXACIN. [Suspect]
     Active Substance: CIPROFLOXACIN
     Indication: RESPIRATORY TRACT INFECTION
     Route: 048
     Dates: start: 20140806
  2. METEX [Suspect]
     Active Substance: METFORMIN HYDROCHLORIDE
     Indication: RHEUMATOID ARTHRITIS
     Route: 065
     Dates: start: 200710

REACTIONS (16)
  - Activities of daily living impaired [Not Recovered/Not Resolved]
  - Mouth ulceration [Not Recovered/Not Resolved]
  - Swelling [Unknown]
  - Candida infection [Unknown]
  - Vomiting [Unknown]
  - Oropharyngeal pain [Unknown]
  - Scar [Not Recovered/Not Resolved]
  - Bone marrow failure [Unknown]
  - Toxic epidermal necrolysis [Unknown]
  - Pyrexia [Unknown]
  - Gastrointestinal tube insertion [Recovered/Resolved]
  - Renal impairment [Unknown]
  - Hypogeusia [Not Recovered/Not Resolved]
  - Tendon pain [Unknown]
  - Rash erythematous [Unknown]
  - Pancytopenia [Unknown]

NARRATIVE: CASE EVENT DATE: 201408
